FAERS Safety Report 7091955-8 (Version None)
Quarter: 2010Q4

REPORT INFORMATION
  Report Type: 
  Country: None (occurrence: None)
  Receive Date: 20101109
  Receipt Date: 20101102
  Transmission Date: 20110411
  Serious: Yes (Other)
  Sender: FDA-Public Use
  Company Number: BR-PFIZER INC-2010137860

PATIENT
  Age: 58 Year
  Sex: Female
  Weight: 66 kg

DRUGS (6)
  1. CHAMPIX [Suspect]
     Indication: TOBACCO ABUSE
     Dosage: UNK
     Route: 048
     Dates: start: 20100921, end: 20100101
  2. CHAMPIX [Suspect]
     Dosage: 1 MG, 2X/DAY
     Route: 048
     Dates: start: 20100101, end: 20101001
  3. SUSTRATE [Concomitant]
     Indication: CARDIAC DISORDER
     Dosage: UNK
  4. ATENOLOL [Concomitant]
     Indication: CARDIAC DISORDER
     Dosage: 25 MG, 1X/DAY
  5. ASPIRIN [Concomitant]
     Indication: CARDIAC DISORDER
     Dosage: UNK
  6. OMEPRAZOLE [Concomitant]
     Indication: GASTRIC DISORDER
     Dosage: 20 MG, 1X/DAY

REACTIONS (2)
  - INSOMNIA [None]
  - MONOPLEGIA [None]
